FAERS Safety Report 4887096-8 (Version None)
Quarter: 2006Q1

REPORT INFORMATION
  Report Type: 
  Country: None (occurrence: None)
  Receive Date: 20060120
  Receipt Date: 20051219
  Transmission Date: 20060701
  Serious: Yes (Life-Threatening, Hospitalization)
  Sender: FDA-Public Use
  Company Number: FR-MERCK-0512FRA00075

PATIENT
  Age: 71 Year
  Sex: Female

DRUGS (7)
  1. ZETIA [Suspect]
     Indication: HYPERCHOLESTEROLAEMIA
     Route: 048
     Dates: start: 20050630, end: 20051002
  2. AMIODARONE [Concomitant]
     Indication: ARRHYTHMIA PROPHYLAXIS
     Route: 048
  3. ASPIRIN [Concomitant]
     Indication: THROMBOSIS PROPHYLAXIS
     Route: 048
  4. CLOPIDOGREL BISULFATE [Concomitant]
     Indication: THROMBOSIS PROPHYLAXIS
     Route: 048
  5. ACEBUTOLOL [Concomitant]
     Indication: HYPERTENSION
     Route: 048
  6. CLONAZEPAM [Concomitant]
     Route: 048
  7. ALFACALCIDOL [Concomitant]
     Route: 048

REACTIONS (2)
  - DIALYSIS [None]
  - HYPERKALAEMIA [None]
